FAERS Safety Report 9569060 (Version 2)
Quarter: 2014Q1

REPORT INFORMATION
  Report Type: Spontaneous
  Country: US (occurrence: US)
  Receive Date: 20130930
  Receipt Date: 20140228
  Transmission Date: 20141002
  Serious: No
  Sender: FDA-Public Use
  Company Number: US-AMGEN-USASP2013058818

PATIENT
  Age: 62 Year
  Sex: Female

DRUGS (2)
  1. ENBREL [Suspect]
     Indication: RHEUMATOID ARTHRITIS
     Dosage: 50 MG, QWK
     Route: 065
     Dates: start: 20130709, end: 2013
  2. HUMIRA [Concomitant]
     Dosage: UNK, EVERY OTHER WEEK

REACTIONS (2)
  - Headache [Recovered/Resolved]
  - Asthenia [Recovered/Resolved]
